FAERS Safety Report 11460060 (Version 1)
Quarter: 2020Q3

REPORT INFORMATION
  Report Type: Report from Study
  Country: KR (occurrence: KR)
  Receive Date: 20150904
  Receipt Date: 20150904
  Transmission Date: 20201105
  Serious: Yes (Hospitalization)
  Sender: FDA-Public Use
  Company Number: KR-OTSUKA-JP-2013-11860

PATIENT

DRUGS (49)
  1. PROBUCOL [Suspect]
     Active Substance: PROBUCOL
     Indication: MYOCARDIAL INFARCTION
     Dosage: 500 MG, QD
     Route: 048
     Dates: start: 20130528, end: 20141023
  2. PROBUCOL [Suspect]
     Active Substance: PROBUCOL
     Indication: CARDIOMEGALY
  3. VYTORIN [Concomitant]
     Active Substance: EZETIMIBE\SIMVASTATIN
     Indication: DYSLIPIDAEMIA
     Dosage: 1 DF, QD
     Route: 048
     Dates: start: 20080218
  4. ISOTRIL ER [Concomitant]
     Dosage: 60 MG, QD
     Route: 048
     Dates: start: 20140618, end: 20140715
  5. NITROGLYCERIN. [Concomitant]
     Active Substance: NITROGLYCERIN
     Indication: ANGINA PECTORIS
     Dosage: UNK
     Route: 055
     Dates: start: 200504
  6. ALMAGEL?F [Concomitant]
     Indication: CHEST PAIN
     Dosage: 3 DF, QD
     Route: 048
     Dates: start: 20130927
  7. DICAMAX?D [Concomitant]
     Indication: OSTEOPOROSIS PROPHYLAXIS
  8. CODAEWON [Concomitant]
     Indication: PRODUCTIVE COUGH
  9. FURIX (FUROSEMIDE) [Concomitant]
     Active Substance: FUROSEMIDE
     Indication: HYPERTENSION
     Dosage: 20 MG, QD
     Route: 048
     Dates: start: 20140507, end: 20140519
  10. CILOSTAZOL. [Suspect]
     Active Substance: CILOSTAZOL
     Indication: CARDIOMEGALY
     Dosage: 200 MG, QD
     Route: 048
     Dates: start: 20130528, end: 20141023
  11. ISOTRIL ER [Concomitant]
     Indication: MYOCARDIAL INFARCTION
     Dosage: 30 MG, QD
     Route: 048
     Dates: start: 20080107, end: 20140617
  12. STILNOX [Concomitant]
     Active Substance: ZOLPIDEM TARTRATE
     Dosage: 1 DF, QD
     Route: 048
     Dates: start: 20130602, end: 20130602
  13. DICAMAX?D [Concomitant]
     Indication: VITAMIN SUPPLEMENTATION
     Dosage: 1 DF, QD
     Route: 048
     Dates: start: 20130730
  14. ROISOL [Concomitant]
     Indication: PRODUCTIVE COUGH
  15. CLOART [Concomitant]
     Dosage: 75 MG, QD
     Route: 048
     Dates: start: 20140716
  16. FURIX (FUROSEMIDE) [Concomitant]
     Active Substance: FUROSEMIDE
     Dosage: 40 MG, QD
     Route: 048
     Dates: start: 20140524, end: 20140609
  17. FURIX (FUROSEMIDE) [Concomitant]
     Active Substance: FUROSEMIDE
     Dosage: 40 MG, QD
     Route: 048
     Dates: start: 20140716
  18. ASPIRIN. [Concomitant]
     Active Substance: ASPIRIN
     Dosage: 100 MG, QD
     Route: 048
     Dates: start: 20130507, end: 20130521
  19. ROISOL [Concomitant]
     Indication: COUGH
     Dosage: 90 MG, QD
     Route: 048
     Dates: start: 20130828
  20. LANSTON LFDT [Concomitant]
     Active Substance: LANSOPRAZOLE
     Indication: GASTRITIS EROSIVE
     Dosage: 15 MG, QD
     Route: 048
     Dates: start: 20140319, end: 20140710
  21. DILATREND [Concomitant]
     Active Substance: CARVEDILOL
     Dosage: 1.562 MG, QD
     Route: 048
     Dates: start: 20140519, end: 20140519
  22. MOTILIUM M [Concomitant]
     Indication: ABDOMINAL DISCOMFORT
     Dosage: 30 MG, QD
     Route: 048
     Dates: start: 20130730
  23. CODAEWON [Concomitant]
     Indication: COUGH
     Dosage: 6 DF, QD
     Route: 048
     Dates: start: 20130828
  24. FURIX (FUROSEMIDE) [Concomitant]
     Active Substance: FUROSEMIDE
     Dosage: 20 MG, QD
     Route: 048
     Dates: start: 20140609, end: 20140716
  25. PROBUCOL [Suspect]
     Active Substance: PROBUCOL
     Indication: HYPERLIPIDAEMIA
     Dosage: 500 MG, QD
     Route: 048
     Dates: start: 20111020, end: 20130521
  26. ASPIRIN. [Concomitant]
     Active Substance: ASPIRIN
     Indication: MYOCARDIAL INFARCTION
     Dosage: 100 MG, QD
     Dates: start: 20050517
  27. ISOTRIL ER [Concomitant]
     Dosage: 30 MG, QD
     Route: 048
     Dates: start: 20140716
  28. DILATREND [Concomitant]
     Active Substance: CARVEDILOL
     Dosage: 3.125 MG, QD
     Route: 048
     Dates: start: 20140618, end: 20140618
  29. CLOART [Concomitant]
     Indication: MYOCARDIAL INFARCTION
     Dosage: 75 MG, QD
     Route: 048
     Dates: start: 20140120, end: 20140624
  30. CILOSTAZOL. [Suspect]
     Active Substance: CILOSTAZOL
     Indication: MYOCARDIAL INFARCTION
     Dosage: 200 MG, QD
     Route: 048
     Dates: start: 20111020, end: 20130521
  31. CILOSTAZOL. [Suspect]
     Active Substance: CILOSTAZOL
     Indication: MITRAL VALVE INCOMPETENCE
  32. CILOSTAZOL. [Suspect]
     Active Substance: CILOSTAZOL
     Indication: HYPERTENSION
  33. CILOSTAZOL. [Suspect]
     Active Substance: CILOSTAZOL
     Indication: HYPERLIPIDAEMIA
  34. PROBUCOL [Suspect]
     Active Substance: PROBUCOL
     Indication: HYPERTENSION
  35. ASPIRIN. [Concomitant]
     Active Substance: ASPIRIN
     Dosage: 1 DF, QD
     Route: 048
     Dates: start: 20130531
  36. BETAXOLOL HCL [Concomitant]
     Active Substance: BETAXOLOL HYDROCHLORIDE
     Indication: HYPERTENSION
     Dosage: 0.25 DF, UNK
     Route: 048
     Dates: start: 20100318
  37. NITROGLYCERIN. [Concomitant]
     Active Substance: NITROGLYCERIN
     Indication: ANGINA PECTORIS
     Dosage: UNK, PRN
     Route: 048
     Dates: start: 200504
  38. NITROGLYCERIN. [Concomitant]
     Active Substance: NITROGLYCERIN
     Indication: MYOCARDIAL INFARCTION
     Dosage: 0.6 MG, QD
     Route: 060
     Dates: start: 20130515
  39. STILNOX [Concomitant]
     Active Substance: ZOLPIDEM TARTRATE
     Indication: INSOMNIA
     Dosage: 10 MG, QD
     Route: 048
     Dates: start: 20130502, end: 20130522
  40. DILATREND [Concomitant]
     Active Substance: CARVEDILOL
     Indication: MYOCARDIAL INFARCTION
     Dosage: 1.562 MG, QD
     Route: 048
     Dates: start: 20130717, end: 20140518
  41. DILATREND [Concomitant]
     Active Substance: CARVEDILOL
     Dosage: 1.562 MG, QD
     Dates: start: 20140622
  42. MICARDIS [Concomitant]
     Active Substance: TELMISARTAN
     Indication: HYPERTENSION
     Dosage: 40 MG, QD
     Route: 048
     Dates: start: 20131023, end: 20140518
  43. MICARDIS [Concomitant]
     Active Substance: TELMISARTAN
     Dosage: 40 MG, QD
     Route: 048
     Dates: start: 20140518, end: 20140519
  44. MICARDIS [Concomitant]
     Active Substance: TELMISARTAN
     Dosage: 40 MG, QD
     Route: 048
     Dates: start: 20140618, end: 20140707
  45. PROBUCOL [Suspect]
     Active Substance: PROBUCOL
     Indication: MITRAL VALVE INCOMPETENCE
  46. TEVETEN [Concomitant]
     Active Substance: EPROSARTAN MESYLATE
     Indication: HYPERTENSION
     Dosage: 300 MG, QD
     Route: 048
     Dates: start: 20080107, end: 20131023
  47. DILATREND [Concomitant]
     Active Substance: CARVEDILOL
     Dosage: 3.125 MG, QD
     Route: 048
     Dates: start: 20140518, end: 20140518
  48. CELEBREX [Concomitant]
     Active Substance: CELECOXIB
     Indication: ANALGESIC THERAPY
     Dosage: 200 MG, QD
     Route: 048
     Dates: start: 20130730
  49. COZAAR [Concomitant]
     Active Substance: LOSARTAN POTASSIUM
     Indication: MYOCARDIAL INFARCTION
     Dosage: 50 MG, QD
     Route: 048
     Dates: start: 20140519

REACTIONS (5)
  - Dyspnoea [Recovered/Resolved]
  - Cataract [Recovered/Resolved]
  - Femoral neck fracture [Recovering/Resolving]
  - Abdominal discomfort [Recovering/Resolving]
  - Chest pain [Recovered/Resolved]

NARRATIVE: CASE EVENT DATE: 20130521
